FAERS Safety Report 10010804 (Version 1)
Quarter: 2014Q1

REPORT INFORMATION
  Report Type: Spontaneous
  Country: DE (occurrence: None)
  Receive Date: 20140311
  Receipt Date: 20140311
  Transmission Date: 20141002
  Serious: Yes (Hospitalization)
  Sender: FDA-Public Use
  Company Number: AUR-APL-2014-02292

PATIENT
  Age: 81 Year
  Sex: Female
  Weight: 50 kg

DRUGS (5)
  1. SIMVASTATIN [Suspect]
     Indication: HYPERLIPIDAEMIA
     Dates: start: 201307, end: 201401
  2. RIVAROXABAN [Suspect]
     Indication: ATRIAL FIBRILLATION
     Dates: start: 201307, end: 201401
  3. BISOPROLOL (BISOPROLOL) [Concomitant]
  4. RAMIPRIL (RAMIPRIL) [Concomitant]
  5. TOREM (TORASEMIDE) [Concomitant]

REACTIONS (1)
  - Hepatitis toxic [None]
